FAERS Safety Report 8314166-4 (Version None)
Quarter: 2012Q2

REPORT INFORMATION
  Report Type: 
  Country: None (occurrence: None)
  Receive Date: 20120424
  Receipt Date: 20120416
  Transmission Date: 20120825
  Serious: Yes (Hospitalization)
  Sender: FDA-Public Use
  Company Number: 2012SP019858

PATIENT
  Sex: Female

DRUGS (1)
  1. CERAZETTE (DESOGESTREL /00754001/) [Suspect]
     Indication: ENDOMETRIOSIS
     Dosage: PO
     Route: 048
     Dates: start: 20120101

REACTIONS (6)
  - HYPOMENORRHOEA [None]
  - IRRITABILITY [None]
  - CYST [None]
  - SWELLING [None]
  - HEADACHE [None]
  - NERVOUSNESS [None]
